FAERS Safety Report 9788547 (Version 1)
Quarter: 2013Q4

REPORT INFORMATION
  Report Type: Spontaneous
  Country: US (occurrence: US)
  Receive Date: 20131230
  Receipt Date: 20131230
  Transmission Date: 20140711
  Serious: Yes (Hospitalization)
  Sender: FDA-Public Use
  Company Number: US-BRISTOL-MYERS SQUIBB COMPANY-19931195

PATIENT
  Age: 68 Year
  Sex: Female
  Weight: 67.12 kg

DRUGS (3)
  1. SPRYCEL [Suspect]
     Indication: CHRONIC MYELOID LEUKAEMIA
  2. GLEEVEC [Suspect]
     Indication: CHRONIC MYELOID LEUKAEMIA
  3. POLYETHYLENE GLYCOL [Concomitant]
     Indication: CONSTIPATION

REACTIONS (3)
  - Pneumothorax [Unknown]
  - Effusion [Unknown]
  - Respiratory disorder [Unknown]
